FAERS Safety Report 24278140 (Version 1)
Quarter: 2024Q3

REPORT INFORMATION
  Report Type: Spontaneous
  Country: US (occurrence: None)
  Receive Date: 20240830
  Receipt Date: 20240830
  Transmission Date: 20241017
  Serious: No
  Sender: Public
  Company Number: None

PATIENT
  Sex: Male

DRUGS (1)
  1. RINVOQ [Suspect]
     Active Substance: UPADACITINIB
     Indication: Colitis ulcerative
     Dosage: FREQUENCY : DAILY;?
     Route: 048
     Dates: start: 202408

REACTIONS (4)
  - Urinary tract infection [None]
  - Therapy interrupted [None]
  - Abdominal pain lower [None]
  - Contusion [None]
